FAERS Safety Report 4448909-7 (Version None)
Quarter: 2004Q3

REPORT INFORMATION
  Report Type: 
  Country: None (occurrence: None)
  Receive Date: 20040909
  Receipt Date: 20040813
  Transmission Date: 20050211
  Serious: Yes (Hospitalization)
  Sender: FDA-Public Use
  Company Number: 200414329BCC

PATIENT
  Sex: Female

DRUGS (3)
  1. RID MOUSSE [Suspect]
     Indication: DRUG EXPOSURE DURING PREGNANCY
     Dosage: TRANSPLACENTAL
     Route: 064
  2. RID MOUSSE [Suspect]
     Indication: LICE INFESTATION
     Dosage: TRANSPLACENTAL
     Route: 064
  3. NIX [Suspect]

REACTIONS (3)
  - DRUG EXPOSURE DURING PREGNANCY [None]
  - JAUNDICE NEONATAL [None]
  - PREMATURE BABY [None]
